FAERS Safety Report 17445194 (Version 3)
Quarter: 2020Q2

REPORT INFORMATION
  Report Type: Spontaneous
  Country: US (occurrence: US)
  Receive Date: 20200221
  Receipt Date: 20200624
  Transmission Date: 20200713
  Serious: No
  Sender: FDA-Public Use
  Company Number: US-PFIZER INC-2018107922

PATIENT
  Age: 80 Year
  Sex: Male
  Weight: 76.19 kg

DRUGS (7)
  1. METFORMIN [Concomitant]
     Active Substance: METFORMIN HYDROCHLORIDE
     Indication: DIABETES MELLITUS
     Dosage: UNK
  2. LYRICA [Suspect]
     Active Substance: PREGABALIN
     Indication: DIABETIC NEUROPATHY
     Dosage: 100 MG
     Dates: start: 2016
  3. LYRICA [Suspect]
     Active Substance: PREGABALIN
     Indication: PAIN
     Dosage: 75 MG, DAILY [ONE CAPSULE BY MOUTH DAILY]
     Route: 048
  4. GLIMEPIRIDE. [Concomitant]
     Active Substance: GLIMEPIRIDE
     Indication: DIABETES MELLITUS
     Dosage: UNK
  5. ZOLPIDEM [Concomitant]
     Active Substance: ZOLPIDEM TARTRATE
     Dosage: 10 MG
  6. LYRICA [Suspect]
     Active Substance: PREGABALIN
     Indication: COLON CANCER
     Dosage: 100 MG, 1X/DAY (AT NIGHT)
     Route: 048
  7. LYRICA [Suspect]
     Active Substance: PREGABALIN
     Indication: INFLAMMATION

REACTIONS (1)
  - Hypoacusis [Recovered/Resolved]
